FAERS Safety Report 7755076-0 (Version None)
Quarter: 2011Q3

REPORT INFORMATION
  Report Type: 
  Country: None (occurrence: None)
  Receive Date: 20110916
  Receipt Date: 20110906
  Transmission Date: 20111222
  Serious: Yes (Other)
  Sender: FDA-Public Use
  Company Number: US-ELI_LILLY_AND_COMPANY-US201108005237

PATIENT
  Age: 62 Year
  Sex: Male

DRUGS (1)
  1. FORTEO [Suspect]
     Indication: OSTEOPOROSIS
     Dosage: UNK
     Dates: end: 20110701

REACTIONS (4)
  - DEMENTIA ALZHEIMER'S TYPE [None]
  - KNEE ARTHROPLASTY [None]
  - DIARRHOEA [None]
  - AMNESIA [None]
